FAERS Safety Report 17519805 (Version 5)
Quarter: 2020Q3

REPORT INFORMATION
  Report Type: Spontaneous
  Country: IT (occurrence: IT)
  Receive Date: 20200310
  Receipt Date: 20200706
  Transmission Date: 20201102
  Serious: Yes (Life-Threatening)
  Sender: FDA-Public Use
  Company Number: IT-MYLANLABS-2020M1026130

PATIENT
  Age: 20 Year
  Sex: Female

DRUGS (5)
  1. SERTRALINE [Suspect]
     Active Substance: SERTRALINE HYDROCHLORIDE
     Indication: PRODUCT USED FOR UNKNOWN INDICATION
     Dosage: 10 DOSAGE FORM, TOTAL
     Route: 048
     Dates: start: 20200128, end: 20200128
  2. QUETIAPINE. [Suspect]
     Active Substance: QUETIAPINE
     Indication: PRODUCT USED FOR UNKNOWN INDICATION
     Dosage: 2400 MILLIGRAM, QD
     Dates: start: 20200128, end: 20200128
  3. RIVOTRIL [Concomitant]
     Active Substance: CLONAZEPAM
     Dosage: 1 DOSAGE FORM
     Route: 048
  4. ALPRAZOLAM. [Suspect]
     Active Substance: ALPRAZOLAM
     Indication: PRODUCT USED FOR UNKNOWN INDICATION
     Dosage: 2.5 MILLIGRAM, TOTAL
     Route: 048
     Dates: start: 20200128, end: 20200128
  5. ESCITALOPRAM [Concomitant]
     Active Substance: ESCITALOPRAM OXALATE
     Dosage: 1 DOSAGE FORM
     Route: 048

REACTIONS (7)
  - Tachycardia [Recovered/Resolved]
  - Intentional self-injury [Recovered/Resolved]
  - Intentional product misuse [Unknown]
  - Sopor [Recovered/Resolved]
  - Coma [Recovered/Resolved]
  - Drug abuse [Recovered/Resolved]
  - Mydriasis [Recovered/Resolved]

NARRATIVE: CASE EVENT DATE: 20200129
